FAERS Safety Report 5637494-X (Version None)
Quarter: 2008Q1

REPORT INFORMATION
  Report Type: 
  Country: None (occurrence: None)
  Receive Date: 20080219
  Receipt Date: 20080211
  Transmission Date: 20080703
  Serious: Yes (Hospitalization, Other)
  Sender: FDA-Public Use
  Company Number: 163-21880-07071124

PATIENT
  Age: 78 Year
  Sex: Female

DRUGS (15)
  1. REVLIMID [Suspect]
     Indication: MULTIPLE MYELOMA
     Dosage: 25 MG, X21 DAYS, ORAL
     Route: 048
     Dates: start: 20070529, end: 20070701
  2. REVLIMID [Suspect]
     Indication: NEPHROTIC SYNDROME
     Dosage: 25 MG, X21 DAYS, ORAL
     Route: 048
     Dates: start: 20070529, end: 20070701
  3. PREDNISONE TAB [Suspect]
     Indication: MULTIPLE MYELOMA
     Dates: start: 20070529
  4. DECADRON [Concomitant]
  5. PROTONIX [Concomitant]
  6. FOLIC ACID [Concomitant]
  7. MULTIVITAMIN [Concomitant]
  8. OXYCODONE HCL [Concomitant]
  9. METOPROLOL SUCCINATE [Concomitant]
  10. ACYCLOVIR [Concomitant]
  11. PENTAMIDINE ISETHIONATE (PENTAMIDINE ISETHIONATE) (SOLUTION) [Concomitant]
  12. ASPIRIN [Concomitant]
  13. DIGOXIN [Concomitant]
  14. ZOLOFT [Concomitant]
  15. THALOMID [Concomitant]

REACTIONS (4)
  - DISEASE RECURRENCE [None]
  - HUMERUS FRACTURE [None]
  - PNEUMONIA [None]
  - SUPRAVENTRICULAR TACHYCARDIA [None]
